FAERS Safety Report 4906322-X (Version None)
Quarter: 2006Q1

REPORT INFORMATION
  Report Type: 
  Country: None (occurrence: None)
  Receive Date: 20060206
  Receipt Date: 20060125
  Transmission Date: 20060701
  Serious: No
  Sender: FDA-Public Use
  Company Number: 06H-087-0304702-00

PATIENT
  Age: 13 Year
  Sex: Female

DRUGS (8)
  1. PRECEDEX [Suspect]
     Indication: SEDATION
     Dosage: INTRAVENOUS
     Route: 042
     Dates: start: 20051227, end: 20051229
  2. FUROSEMIDE [Concomitant]
  3. ANITHROMBIN III (ANITHROMBIN III) [Concomitant]
  4. MIDAZOLAM HCL [Concomitant]
  5. PROPOFOL [Concomitant]
  6. SIVELESTAT SODIUM HYDRATE [Concomitant]
  7. PANIPENEM BETAMIPRON [Concomitant]
  8. GABEXATE MESILATE (GABEXATE MESILATE) [Concomitant]

REACTIONS (2)
  - ALANINE AMINOTRANSFERASE INCREASED [None]
  - LIVER DISORDER [None]
